FAERS Safety Report 23341499 (Version 2)
Quarter: 2024Q2

REPORT INFORMATION
  Report Type: Spontaneous
  Country: CA (occurrence: CA)
  Receive Date: 20231227
  Receipt Date: 20240410
  Transmission Date: 20240716
  Serious: Yes (Hospitalization, Other)
  Sender: FDA-Public Use
  Company Number: CA-TAKEDA-2023TUS089998

PATIENT
  Age: 10 Year
  Sex: Male
  Weight: 36 kg

DRUGS (4)
  1. LANSOPRAZOLE [Suspect]
     Active Substance: LANSOPRAZOLE
     Indication: Antiallergic therapy
     Dosage: 30 MILLIGRAM, BID, CAPSULE, DELAYED RELEASE
     Route: 048
     Dates: start: 20220317, end: 20220602
  2. LANSOPRAZOLE [Suspect]
     Active Substance: LANSOPRAZOLE
     Indication: Antiallergic therapy
     Route: 048
  3. CICLESONIDE [Concomitant]
     Active Substance: CICLESONIDE
     Indication: Product used for unknown indication
     Dosage: UNK
     Route: 048
  4. CICLESONIDE [Concomitant]
     Active Substance: CICLESONIDE
     Indication: Product used for unknown indication
     Dosage: DOSAGE TEXT: UNK
     Route: 065

REACTIONS (4)
  - Endoscopy upper gastrointestinal tract [Recovering/Resolving]
  - Eosinophilic oesophagitis [Recovering/Resolving]
  - Gastritis [Recovering/Resolving]
  - Polyp [Recovering/Resolving]

NARRATIVE: CASE EVENT DATE: 20221105
